FAERS Safety Report 4950476-6 (Version None)
Quarter: 2006Q1

REPORT INFORMATION
  Report Type: 
  Country: None (occurrence: None)
  Receive Date: 20060322
  Receipt Date: 20060315
  Transmission Date: 20060701
  Serious: Yes (Hospitalization)
  Sender: FDA-Public Use
  Company Number: 2005057470

PATIENT
  Age: 33 Year
  Sex: Female
  Weight: 57.3 kg

DRUGS (11)
  1. FLOLAN [Suspect]
     Indication: PULMONARY HYPERTENSION
     Route: 042
     Dates: start: 20011126
  2. SILDENAFIL CITRATE [Concomitant]
     Indication: PULMONARY HYPERTENSION
     Route: 048
     Dates: start: 20050223
  3. LASIX [Concomitant]
     Dates: start: 20010917
  4. KLOR-CON [Concomitant]
     Dates: start: 20010917
  5. ALDACTONE [Concomitant]
     Dates: start: 20010917
  6. WARFARIN SODIUM [Concomitant]
     Dates: start: 20011009
  7. PAXIL [Concomitant]
     Dates: start: 20040101
  8. OXCARBAZEPINE [Concomitant]
     Dates: start: 20040101
  9. TRAZODONE HCL [Concomitant]
     Dates: start: 20040818
  10. TYLENOL (CAPLET) [Concomitant]
     Dates: start: 20050224
  11. LOPERAMIDE [Concomitant]
     Dates: start: 20050224

REACTIONS (8)
  - ABDOMINAL DISTENSION [None]
  - BASEDOW'S DISEASE [None]
  - COUGH [None]
  - DIZZINESS [None]
  - DYSPNOEA [None]
  - LOBAR PNEUMONIA [None]
  - LUNG CONSOLIDATION [None]
  - RIGHT VENTRICULAR FAILURE [None]
